FAERS Safety Report 9928132 (Version 2)
Quarter: 2014Q1

REPORT INFORMATION
  Report Type: Spontaneous
  Country: BR (occurrence: BR)
  Receive Date: 20140227
  Receipt Date: 20140227
  Transmission Date: 20141002
  Serious: Yes (Hospitalization)
  Sender: FDA-Public Use
  Company Number: BR-ASTRAZENECA-2014SE06006

PATIENT
  Age: 782 Month
  Sex: Female
  Weight: 58.2 kg

DRUGS (14)
  1. SYMBICORT TURBUHALER [Suspect]
     Indication: CHRONIC OBSTRUCTIVE PULMONARY DISEASE
     Dosage: 160/4.5 MCG, 2 INHALATIONS/BID
     Route: 055
  2. SYMBICORT TURBUHALER [Suspect]
     Indication: CHRONIC OBSTRUCTIVE PULMONARY DISEASE
     Dosage: 12/400 MCG, DAILY-ALENIA
     Route: 055
  3. SPIRIVA [Concomitant]
     Indication: CHRONIC OBSTRUCTIVE PULMONARY DISEASE
     Dosage: DAILY
     Route: 055
  4. ALENDRONATE [Concomitant]
     Dosage: DAILY
     Route: 048
  5. SPIRONOLACTONE [Concomitant]
     Dosage: DAILY
     Route: 048
  6. ESCITALOPRAM [Concomitant]
     Route: 048
  7. DAXAS [Concomitant]
     Route: 048
  8. CALCIUM [Concomitant]
     Indication: MINERAL SUPPLEMENTATION
     Dosage: DAILY
     Route: 048
  9. RANITIDINE [Concomitant]
     Indication: PROPHYLAXIS AGAINST GASTROINTESTINAL ULCER
     Route: 048
  10. DIGOXIN [Concomitant]
     Indication: CARDIAC DISORDER
     Dosage: DAILY
     Route: 048
  11. BROMAZEPAM [Concomitant]
     Indication: SLEEP DISORDER
     Dosage: DAILY
     Route: 048
  12. LOSARTAN [Concomitant]
     Indication: HYPERTENSION
     Dosage: DAILY
     Route: 048
  13. SUSTRATE [Concomitant]
     Route: 048
  14. ASPIRINA PREVENT [Concomitant]
     Indication: CARDIAC DISORDER
     Dosage: DAILY
     Route: 048

REACTIONS (4)
  - Dyspnoea [Recovering/Resolving]
  - Chest pain [Recovering/Resolving]
  - Weight decreased [Not Recovered/Not Resolved]
  - Intentional drug misuse [Unknown]
